FAERS Safety Report 24633656 (Version 1)
Quarter: 2024Q4

REPORT INFORMATION
  Report Type: Spontaneous
  Country: US (occurrence: US)
  Receive Date: 20241118
  Receipt Date: 20241118
  Transmission Date: 20250115
  Serious: Yes (Disabling, Other)
  Sender: JOHNSON AND JOHNSON
  Company Number: US-COLLEGIUM PHARMACEUTICAL, INC.-20241101220

PATIENT
  Age: 58 Year
  Sex: Female
  Weight: 108.84 kg

DRUGS (2)
  1. TAPENTADOL HYDROCHLORIDE [Suspect]
     Active Substance: TAPENTADOL HYDROCHLORIDE
     Indication: Neuralgia
     Dosage: 50 MILLIGRAM, 1/DAY
     Route: 048
     Dates: start: 2013
  2. TRAMADOL [Concomitant]
     Active Substance: TRAMADOL
     Indication: Product used for unknown indication
     Dosage: 50 MILLIGRAM
     Route: 065

REACTIONS (1)
  - Disability [Not Recovered/Not Resolved]
